FAERS Safety Report 13999139 (Version 1)
Quarter: 2017Q3

REPORT INFORMATION
  Report Type: Report from Study
  Country: IE (occurrence: IE)
  Receive Date: 20170922
  Receipt Date: 20170922
  Transmission Date: 20171128
  Serious: Yes (Other)
  Sender: FDA-Public Use
  Company Number: IE-AMGEN-IRLSL2017141605

PATIENT
  Age: 32 Year
  Sex: Female

DRUGS (5)
  1. EZETROL [Concomitant]
     Active Substance: EZETIMIBE
     Dosage: 10 MG, QD
  2. ASPIRIN. [Concomitant]
     Active Substance: ASPIRIN
     Dosage: 100 MG, QD
  3. REPATHA [Suspect]
     Active Substance: EVOLOCUMAB
     Indication: HYPERLIPIDAEMIA
     Dosage: 140 MG, Q2WK
     Route: 058
     Dates: start: 20160210
  4. TARDYFERON [Concomitant]
     Active Substance: FERROUS SULFATE
     Dosage: 10 MG, QD
  5. LIPITOR [Concomitant]
     Active Substance: ATORVASTATIN CALCIUM
     Dosage: 80 MG, QD

REACTIONS (2)
  - Renal disorder [Unknown]
  - Therapy non-responder [Not Recovered/Not Resolved]
